FAERS Safety Report 9457957 (Version 2)
Quarter: 2013Q4

REPORT INFORMATION
  Report Type: Spontaneous
  Country: US (occurrence: US)
  Receive Date: 20130814
  Receipt Date: 20131127
  Transmission Date: 20140711
  Serious: No
  Sender: FDA-Public Use
  Company Number: US-BAYER-2013-097849

PATIENT
  Sex: Female

DRUGS (2)
  1. CLIMARA [Suspect]
     Indication: OESTROGEN DEFICIENCY
     Dosage: 0.05 MG, QD
     Route: 062
     Dates: start: 1996
  2. CLIMARA [Suspect]
     Indication: HORMONE REPLACEMENT THERAPY
     Dosage: 0.05 MG, QD
     Route: 062

REACTIONS (5)
  - Chemical burn of skin [Not Recovered/Not Resolved]
  - Scar [None]
  - Product adhesion issue [None]
  - Product adhesion issue [None]
  - Migraine [Not Recovered/Not Resolved]
